FAERS Safety Report 6269136-7 (Version None)
Quarter: 2009Q3

REPORT INFORMATION
  Report Type: 
  Country: None (occurrence: None)
  Receive Date: 20090715
  Receipt Date: 20090709
  Transmission Date: 20100115
  Serious: Yes (Other)
  Sender: FDA-Public Use
  Company Number: ES-AMGEN-US330765

PATIENT
  Age: 44 Year
  Sex: Male

DRUGS (5)
  1. ENBREL [Suspect]
     Indication: PSORIASIS
     Route: 058
     Dates: start: 20081108, end: 20090113
  2. ENBREL [Suspect]
     Dosage: UNKNOWN
     Dates: start: 20090601
  3. RIFAMPICIN [Suspect]
     Dosage: UNKNOWN
     Route: 065
  4. PARACETAMOL [Concomitant]
     Route: 048
     Dates: start: 20081108, end: 20090113
  5. CEMIDON [Concomitant]
     Indication: TUBERCULIN TEST POSITIVE
     Route: 048
     Dates: start: 20081101

REACTIONS (2)
  - HEPATITIS TOXIC [None]
  - TRANSAMINASES INCREASED [None]
